FAERS Safety Report 4347583-8 (Version None)
Quarter: 2004Q2

REPORT INFORMATION
  Report Type: 
  Country: None (occurrence: None)
  Receive Date: 20040422
  Receipt Date: 20040405
  Transmission Date: 20050107
  Serious: Yes (Other)
  Sender: FDA-Public Use
  Company Number: US_0404102159

PATIENT
  Age: 79 Year
  Sex: Female

DRUGS (3)
  1. EVISTA [Suspect]
     Dates: start: 19990101
  2. FOSAMAX [Concomitant]
  3. ACTONEL [Concomitant]

REACTIONS (2)
  - MUSCLE CRAMP [None]
  - SPINAL COMPRESSION FRACTURE [None]
